FAERS Safety Report 19678701 (Version 1)
Quarter: 2021Q3

REPORT INFORMATION
  Report Type: Spontaneous
  Country: US (occurrence: US)
  Receive Date: 20210809
  Receipt Date: 20210809
  Transmission Date: 20211014
  Serious: Yes (Disabling)
  Sender: FDA-Public Use
  Company Number: None

PATIENT
  Age: 34 Year
  Sex: Male
  Weight: 90 kg

DRUGS (15)
  1. GABAPENTIN. [Concomitant]
     Active Substance: GABAPENTIN
  2. ESOMEPRAZOLE. [Concomitant]
     Active Substance: ESOMEPRAZOLE MAGNESIUM
  3. DUPIXENT [Concomitant]
     Active Substance: DUPILUMAB
  4. PROBIOTICS [Concomitant]
     Active Substance: PROBIOTICS NOS
  5. BUPROPION XL [Concomitant]
     Active Substance: BUPROPION
  6. DULOXETINE. [Concomitant]
     Active Substance: DULOXETINE
  7. TRAMADOL. [Concomitant]
     Active Substance: TRAMADOL
  8. DEXTROAMPHET SACCHARAT, AMPHET ASPARTATE, DEXTROAMPHET SULFATE AND AMPHET SULFAT [Suspect]
     Active Substance: AMPHETAMINE ASPARTATE\AMPHETAMINE SULFATE\DEXTROAMPHETAMINE SACCHARATE\DEXTROAMPHETAMINE SULFATE
     Indication: ATTENTION DEFICIT HYPERACTIVITY DISORDER
     Dosage: ?          QUANTITY:1 TABLET(S);?
     Route: 048
     Dates: start: 20210720, end: 20210727
  9. CIMETIDINE [Concomitant]
     Active Substance: CIMETIDINE
  10. MONTELUKAST [Concomitant]
     Active Substance: MONTELUKAST SODIUM
  11. VITAMIN C [Concomitant]
     Active Substance: ASCORBIC ACID
  12. DEXTROAMPHET SACCHARAT, AMPHET ASPARTATE, DEXTROAMPHET SULFATE AND AMPHET SULFAT [Concomitant]
     Active Substance: AMPHETAMINE ASPARTATE\AMPHETAMINE SULFATE\DEXTROAMPHETAMINE SACCHARATE\DEXTROAMPHETAMINE SULFATE
  13. PROPRANOLOL [Concomitant]
     Active Substance: PROPRANOLOL HYDROCHLORIDE
  14. QUETIAPINE. [Concomitant]
     Active Substance: QUETIAPINE
  15. XYZAL [Concomitant]
     Active Substance: LEVOCETIRIZINE DIHYDROCHLORIDE

REACTIONS (7)
  - Condition aggravated [None]
  - Product quality issue [None]
  - Taste disorder [None]
  - Attention deficit hyperactivity disorder [None]
  - Diarrhoea [None]
  - Anxiety [None]
  - Product physical issue [None]

NARRATIVE: CASE EVENT DATE: 20210720
